FAERS Safety Report 11070549 (Version 1)
Quarter: 2015Q2

REPORT INFORMATION
  Report Type: Spontaneous
  Country: US (occurrence: US)
  Receive Date: 20150427
  Receipt Date: 20150427
  Transmission Date: 20150821
  Serious: Yes (Other)
  Sender: FDA-Public Use
  Company Number: US-PFIZER INC-2015135149

PATIENT
  Sex: Female

DRUGS (1)
  1. CHILDRENS ROBITUSSIN COUGH AND CHEST CONGESTION DM [Suspect]
     Active Substance: DEXTROMETHORPHAN HYDROBROMIDE\GUAIFENESIN
     Indication: COUGH
     Dosage: 5 MG, SINGLE
     Dates: start: 20150412, end: 20150412

REACTIONS (8)
  - Gait disturbance [Not Recovered/Not Resolved]
  - Choking [Recovered/Resolved]
  - Asthma [Recovered/Resolved]
  - Retching [Recovered/Resolved]
  - Dyspnoea [Recovered/Resolved]
  - Asthenia [Not Recovered/Not Resolved]
  - Fatigue [Not Recovered/Not Resolved]
  - Intentional product misuse [Recovered/Resolved]

NARRATIVE: CASE EVENT DATE: 201504
